FAERS Safety Report 8505660-1 (Version None)
Quarter: 2012Q3

REPORT INFORMATION
  Report Type: 
  Country: None (occurrence: None)
  Receive Date: 20120712
  Receipt Date: 20120703
  Transmission Date: 20120928
  Serious: Yes (Congenital Anomaly, Other)
  Sender: FDA-Public Use
  Company Number: US-US-EMD SERONO, INC.-7144244

PATIENT

DRUGS (1)
  1. REBIF [Suspect]
     Route: 064

REACTIONS (4)
  - FOETAL EXPOSURE DURING PREGNANCY [None]
  - GASTROINTESTINAL MALFORMATION [None]
  - TRISOMY 21 [None]
  - FOETAL GROWTH RESTRICTION [None]
